FAERS Safety Report 12621547 (Version 2)
Quarter: 2016Q3

REPORT INFORMATION
  Report Type: Spontaneous
  Country: HK (occurrence: HK)
  Receive Date: 20160804
  Receipt Date: 20160810
  Transmission Date: 20161109
  Serious: Yes (Life-Threatening, Hospitalization, Disabling, Other)
  Sender: FDA-Public Use
  Company Number: HK-ASTRAZENECA-2016SE82398

PATIENT
  Sex: Female
  Weight: 61.6 kg

DRUGS (1)
  1. OLAPARIB [Suspect]
     Active Substance: OLAPARIB
     Route: 048

REACTIONS (3)
  - Metastases to central nervous system [Unknown]
  - Metastases to bone [Unknown]
  - Disease progression [Unknown]
